FAERS Safety Report 5006437-4 (Version None)
Quarter: 2006Q2

REPORT INFORMATION
  Report Type: 
  Country: None (occurrence: None)
  Receive Date: 20060519
  Receipt Date: 20060516
  Transmission Date: 20061013
  Serious: Yes (Hospitalization)
  Sender: FDA-Public Use
  Company Number: PHNR2006AU00749

PATIENT
  Age: 48 Year
  Sex: Male

DRUGS (3)
  1. LEVODOPA [Suspect]
  2. CABASER [Suspect]
     Indication: PARKINSON'S DISEASE
     Dosage: 8 MG, DAILY
     Route: 048
  3. COMTAN [Suspect]

REACTIONS (2)
  - DYSPNOEA [None]
  - PLEURAL FIBROSIS [None]
